FAERS Safety Report 17657205 (Version 1)
Quarter: 2020Q2

REPORT INFORMATION
  Report Type: Spontaneous
  Country: CA (occurrence: CA)
  Receive Date: 20200410
  Receipt Date: 20200410
  Transmission Date: 20200713
  Serious: Yes (Death)
  Sender: FDA-Public Use
  Company Number: CA-FRESENIUS KABI-FK202003658

PATIENT

DRUGS (2)
  1. HEPARIN (MANUFACTURER UNKNOWN) [Suspect]
     Active Substance: HEPARIN SODIUM
     Indication: ANTICOAGULANT THERAPY
     Dosage: UNKNOWN
     Route: 042
  2. WARFARIN [Suspect]
     Active Substance: WARFARIN
     Indication: ANTICOAGULANT THERAPY
     Dosage: UNKNOWN
     Route: 048

REACTIONS (4)
  - Subarachnoid haemorrhage [Fatal]
  - Subdural haemorrhage [Fatal]
  - Disease recurrence [Fatal]
  - Cerebral haemorrhage [Fatal]
